FAERS Safety Report 24440299 (Version 1)
Quarter: 2024Q4

REPORT INFORMATION
  Report Type: Spontaneous
  Country: US (occurrence: US)
  Receive Date: 20241016
  Receipt Date: 20241016
  Transmission Date: 20250114
  Serious: Yes (Hospitalization, Other)
  Sender: STRIDES
  Company Number: None

PATIENT
  Age: 28 Year
  Sex: Male

DRUGS (28)
  1. TENOFOVIR DISOPROXIL FUMARATE [Suspect]
     Active Substance: TENOFOVIR DISOPROXIL FUMARATE
     Indication: Hepatitis B
     Dosage: UNK
     Route: 065
  2. CYCLOSPORINE [Suspect]
     Active Substance: CYCLOSPORINE
     Indication: Acquired amegakaryocytic thrombocytopenia
     Dosage: 200 MILLIGRAM, BID
     Route: 065
  3. CYCLOSPORINE [Suspect]
     Active Substance: CYCLOSPORINE
     Indication: Systemic lupus erythematosus
     Dosage: 100 MILLIGRAM, BID (DOSE REDUCED)
     Route: 065
  4. MYCOPHENOLATE MOFETIL [Suspect]
     Active Substance: MYCOPHENOLATE MOFETIL
     Indication: Acquired amegakaryocytic thrombocytopenia
     Dosage: 500 MILLIGRAM, BID
     Route: 065
  5. MYCOPHENOLATE MOFETIL [Suspect]
     Active Substance: MYCOPHENOLATE MOFETIL
     Indication: Systemic lupus erythematosus
     Dosage: 1000 MILLIGRAM, BID (DOSE GRADUALLY TITRATED UP)
     Route: 065
  6. MYCOPHENOLATE MOFETIL [Suspect]
     Active Substance: MYCOPHENOLATE MOFETIL
     Dosage: 1500 MILLIGRAM, BID (DOSE GRADUALLY TITRATED UP)
     Route: 065
  7. MYCOPHENOLATE MOFETIL [Suspect]
     Active Substance: MYCOPHENOLATE MOFETIL
     Dosage: 500 MILLIGRAM, BID (RESTARTED DOSE)
     Route: 065
  8. MYCOPHENOLATE MOFETIL [Suspect]
     Active Substance: MYCOPHENOLATE MOFETIL
     Dosage: 1000 MILLIGRAM, BID (DOSE GRADUALLY TITRATED UP)
     Route: 065
  9. MYCOPHENOLATE MOFETIL [Suspect]
     Active Substance: MYCOPHENOLATE MOFETIL
     Dosage: 1500 MILLIGRAM, BID (DOSE GRADUALLY TITRATED UP)
     Route: 065
  10. PREDNISOLONE [Suspect]
     Active Substance: PREDNISOLONE
     Indication: Acquired amegakaryocytic thrombocytopenia
     Dosage: 40 MILLIGRAM
     Route: 065
  11. PREDNISOLONE [Suspect]
     Active Substance: PREDNISOLONE
     Indication: Systemic lupus erythematosus
     Dosage: 30 MILLIGRAM (DOSE TAPERED DOWN)
     Route: 065
  12. PREDNISOLONE [Suspect]
     Active Substance: PREDNISOLONE
     Dosage: 20 MILLIGRAM (DOSE TAPERED DOWN)
     Route: 065
  13. PREDNISOLONE [Suspect]
     Active Substance: PREDNISOLONE
     Dosage: 10 MILLIGRAM (DOSE TAPERED DOWN)
     Route: 065
  14. METHOTREXATE [Suspect]
     Active Substance: METHOTREXATE
     Indication: Acquired amegakaryocytic thrombocytopenia
     Dosage: 25 MILLIGRAM, ONCE A WEEK (EVERY 7 DAYS)
     Route: 065
  15. METHOTREXATE [Suspect]
     Active Substance: METHOTREXATE
     Indication: Systemic lupus erythematosus
  16. DEXAMETHASONE [Suspect]
     Active Substance: DEXAMETHASONE
     Indication: Acquired amegakaryocytic thrombocytopenia
     Dosage: 40 MILLIGRAM
     Route: 048
  17. DEXAMETHASONE [Suspect]
     Active Substance: DEXAMETHASONE
     Indication: Systemic lupus erythematosus
  18. HUMAN IMMUNOGLOBULIN G [Suspect]
     Active Substance: HUMAN IMMUNOGLOBULIN G
     Indication: Acquired amegakaryocytic thrombocytopenia
     Dosage: UNK
     Route: 042
  19. IMMUNE GLOBULIN NOS [Suspect]
     Active Substance: IMMUNE GLOBULIN NOS
     Indication: Systemic lupus erythematosus
  20. METHYLPREDNISOLONE [Suspect]
     Active Substance: METHYLPREDNISOLONE
     Indication: Acquired amegakaryocytic thrombocytopenia
     Dosage: 1000 MILLIGRAM
     Route: 065
  21. METHYLPREDNISOLONE [Suspect]
     Active Substance: METHYLPREDNISOLONE
     Indication: Systemic lupus erythematosus
     Dosage: 60 MILLIGRAM (DECREASED DOSE)
     Route: 065
  22. METHYLPREDNISOLONE [Suspect]
     Active Substance: METHYLPREDNISOLONE
     Dosage: 20 MILLIGRAM (DECREASED DOSE)
     Route: 065
  23. HYDROXYCHLOROQUINE [Suspect]
     Active Substance: HYDROXYCHLOROQUINE
     Indication: Acquired amegakaryocytic thrombocytopenia
     Dosage: 200 MILLIGRAM, BID
     Route: 065
  24. HYDROXYCHLOROQUINE [Suspect]
     Active Substance: HYDROXYCHLOROQUINE
     Indication: Systemic lupus erythematosus
     Dosage: 200 MILLIGRAM, QD
     Route: 065
  25. RITUXIMAB [Suspect]
     Active Substance: RITUXIMAB
     Indication: Acquired amegakaryocytic thrombocytopenia
     Dosage: 1 GRAM
     Route: 065
  26. RITUXIMAB [Suspect]
     Active Substance: RITUXIMAB
     Indication: Systemic lupus erythematosus
  27. ELTROMBOPAG [Suspect]
     Active Substance: ELTROMBOPAG
     Indication: Acquired amegakaryocytic thrombocytopenia
     Dosage: 50 MILLIGRAM, QD
     Route: 065
  28. ELTROMBOPAG [Suspect]
     Active Substance: ELTROMBOPAG
     Indication: Systemic lupus erythematosus

REACTIONS (4)
  - Pancytopenia [Not Recovered/Not Resolved]
  - Therapy non-responder [Unknown]
  - Condition aggravated [Unknown]
  - Off label use [Unknown]
